FAERS Safety Report 5251655-3 (Version None)
Quarter: 2007Q1

REPORT INFORMATION
  Report Type: 
  Country: None (occurrence: None)
  Receive Date: 20070228
  Receipt Date: 20061003
  Transmission Date: 20070707
  Serious: No
  Sender: FDA-Public Use
  Company Number: US-GLAXOSMITHKLINE-A0622288A

PATIENT
  Age: 62 Year
  Sex: Female

DRUGS (3)
  1. LAMICTAL [Suspect]
     Indication: BIPOLAR DISORDER
     Dosage: 100MG PER DAY
     Route: 048
  2. LITHIUM CARBONATE [Concomitant]
  3. TRAZODONE HCL [Concomitant]

REACTIONS (2)
  - DRUG INEFFECTIVE [None]
  - PARAESTHESIA ORAL [None]
